FAERS Safety Report 6125394-0 (Version None)
Quarter: 2009Q1

REPORT INFORMATION
  Report Type: 
  Country: None (occurrence: None)
  Receive Date: 20090319
  Receipt Date: 20090319
  Transmission Date: 20090719
  Serious: Yes (Hospitalization)
  Sender: FDA-Public Use
  Company Number: None

PATIENT
  Age: 56 Year
  Sex: Male

DRUGS (1)
  1. MEGESTROL ACETATE [Suspect]
     Indication: CONSTIPATION
     Dosage: 10 ML BID PO
     Route: 048
     Dates: start: 20090111

REACTIONS (2)
  - NAUSEA [None]
  - VOMITING [None]
